FAERS Safety Report 16307898 (Version 2)
Quarter: 2019Q2

REPORT INFORMATION
  Report Type: Report from Study
  Country: NL (occurrence: NL)
  Receive Date: 20190514
  Receipt Date: 20190605
  Transmission Date: 20190711
  Serious: Yes (Other)
  Sender: FDA-Public Use
  Company Number: NL-TOLMAR, INC.-2019NL004741

PATIENT

DRUGS (23)
  1. PULMICORT TURBUHALER [Concomitant]
     Active Substance: BUDESONIDE
     Route: 065
  2. ZESTRIL [Concomitant]
     Active Substance: LISINOPRIL
     Route: 065
  3. LANOXIN [Concomitant]
     Active Substance: DIGOXIN
     Route: 065
  4. OXAZEPAM. [Concomitant]
     Active Substance: OXAZEPAM
     Route: 065
  5. FORMOTEROL [Concomitant]
     Active Substance: FORMOTEROL
     Route: 065
  6. ATROVENT [Concomitant]
     Active Substance: IPRATROPIUM BROMIDE
     Route: 065
  7. FLUIMICIL [Concomitant]
     Active Substance: ACETYLCYSTEINE
     Route: 065
  8. ACENOCOUMAROL [Concomitant]
     Active Substance: ACENOCOUMAROL
     Route: 065
  9. ESOMEPRAZOL                        /01479301/ [Concomitant]
     Active Substance: ESOMEPRAZOLE
     Route: 065
  10. NITROGLYCERINE [Concomitant]
     Active Substance: NITROGLYCERIN
     Route: 065
  11. ALLOPURINOL. [Concomitant]
     Active Substance: ALLOPURINOL
     Route: 065
  12. ATORVASTATIN [Concomitant]
     Active Substance: ATORVASTATIN
     Route: 065
  13. PREDNISON [Concomitant]
     Active Substance: PREDNISONE
     Route: 065
  14. ELIGARD [Suspect]
     Active Substance: LEUPROLIDE ACETATE
     Indication: PROSTATE CANCER
     Dosage: 45 MG, EVERY 6 MONTHS
     Route: 058
     Dates: start: 20190415, end: 20190531
  15. BICALUTAMIDE. [Suspect]
     Active Substance: BICALUTAMIDE
     Indication: PRODUCT USED FOR UNKNOWN INDICATION
     Dosage: UNK, UNK
     Route: 065
  16. THEOPHYLLIN [Concomitant]
     Active Substance: THEOPHYLLINE ANHYDROUS
     Route: 065
  17. SALBUTAMOL [Concomitant]
     Active Substance: ALBUTEROL
     Route: 065
  18. FUROSEMIDE. [Concomitant]
     Active Substance: FUROSEMIDE
     Route: 065
  19. TRAMADOL. [Concomitant]
     Active Substance: TRAMADOL
     Route: 065
  20. COLCHICINE. [Concomitant]
     Active Substance: COLCHICINE
     Route: 065
  21. SALBUTAMOL CYCLOCAPS [Concomitant]
     Route: 065
  22. METOPROLOL TARTRATE. [Concomitant]
     Active Substance: METOPROLOL TARTRATE
     Route: 065
  23. AMLODIPINE [Concomitant]
     Active Substance: AMLODIPINE BESYLATE
     Route: 065

REACTIONS (5)
  - Arrhythmia [Unknown]
  - Nasal congestion [Unknown]
  - Ocular discomfort [Unknown]
  - Dry mouth [Unknown]
  - Fluid retention [Unknown]

NARRATIVE: CASE EVENT DATE: 20190415
